FAERS Safety Report 6828899-X (Version None)
Quarter: 2010Q3

REPORT INFORMATION
  Report Type: 
  Country: None (occurrence: None)
  Receive Date: 20100706
  Receipt Date: 20100618
  Transmission Date: 20110219
  Serious: No
  Sender: FDA-Public Use
  Company Number: A-CH2010-36719

PATIENT
  Age: 39 Year
  Sex: Female

DRUGS (3)
  1. TRACLEER [Suspect]
     Indication: SKIN ULCER
     Dosage: 125MG, BID, ORAL; 62.6 MG, BID, ORAL
     Route: 048
     Dates: start: 20070101
  2. TRACLEER [Suspect]
     Indication: SKIN ULCER
     Dosage: 125MG, BID, ORAL; 62.6 MG, BID, ORAL
     Route: 048
     Dates: start: 20090901
  3. PROTON PUMP INHIBITORS [Concomitant]

REACTIONS (2)
  - HEPATIC CIRRHOSIS [None]
  - OEDEMA PERIPHERAL [None]
